FAERS Safety Report 6801520-2 (Version None)
Quarter: 2010Q2

REPORT INFORMATION
  Report Type: 
  Country: None (occurrence: None)
  Receive Date: 20100629
  Receipt Date: 20100617
  Transmission Date: 20101027
  Serious: Yes (Hospitalization)
  Sender: FDA-Public Use
  Company Number: US-ELI_LILLY_AND_COMPANY-US201004007097

PATIENT
  Sex: Female
  Weight: 57.143 kg

DRUGS (17)
  1. FORTEO [Suspect]
     Indication: OSTEOPOROSIS
     Dosage: 20 UG, DAILY (1/D)
  2. CYCLOSPORINE [Concomitant]
  3. ACTIGALL [Concomitant]
  4. FUROSEMIDE [Concomitant]
  5. SPIRONOLACTONE [Concomitant]
  6. ASPIRIN LOW [Concomitant]
  7. PRILOSEC [Concomitant]
  8. OXYCONTIN [Concomitant]
  9. FENTANYL [Concomitant]
  10. MEDROL [Concomitant]
  11. VITAMIN A [Concomitant]
  12. FLUDROCORTISONE [Concomitant]
  13. LEVOTHYROXINE SODIUM [Concomitant]
  14. MYFORTIC [Concomitant]
  15. VITAMIN D [Concomitant]
  16. CALCIUM CARBONATE [Concomitant]
     Dosage: 600 MG, UNKNOWN
  17. ACTONEL [Concomitant]

REACTIONS (8)
  - ARTHRALGIA [None]
  - BACK PAIN [None]
  - BONE PAIN [None]
  - DEHYDRATION [None]
  - HYPERCALCAEMIA [None]
  - LIVER FUNCTION TEST ABNORMAL [None]
  - PAIN [None]
  - TRANSPLANT REJECTION [None]
